FAERS Safety Report 4408546-7 (Version None)
Quarter: 2004Q3

REPORT INFORMATION
  Report Type: 
  Country: None (occurrence: None)
  Receive Date: 20040726
  Receipt Date: 20040608
  Transmission Date: 20050211
  Serious: No
  Sender: FDA-Public Use
  Company Number: 2004UW11922

PATIENT
  Age: 58 Year
  Sex: Male

DRUGS (3)
  1. CRESTOR [Suspect]
     Dosage: 10 MG QD PO
     Route: 048
  2. ALTACE [Concomitant]
  3. AMIODARONE HCL [Concomitant]

REACTIONS (1)
  - RENAL FAILURE ACUTE [None]
